FAERS Safety Report 11518640 (Version 1)
Quarter: 2015Q3

REPORT INFORMATION
  Report Type: Spontaneous
  Country: US (occurrence: US)
  Receive Date: 20150917
  Receipt Date: 20150917
  Transmission Date: 20151125
  Serious: No
  Sender: FDA-Public Use
  Company Number: US-BAUSCH-BL-2014-004955

PATIENT
  Age: 72 Year
  Sex: Female
  Weight: 68.1 kg

DRUGS (2)
  1. FLUOROURACIL. [Suspect]
     Active Substance: FLUOROURACIL
     Indication: PRECANCEROUS SKIN LESION
  2. FLUOROURACIL. [Suspect]
     Active Substance: FLUOROURACIL
     Indication: DRY SKIN
     Route: 061
     Dates: start: 20140815, end: 20140903

REACTIONS (4)
  - Application site erythema [Not Recovered/Not Resolved]
  - Application site pain [Not Recovered/Not Resolved]
  - Application site irritation [Recovered/Resolved]
  - Application site scab [Not Recovered/Not Resolved]

NARRATIVE: CASE EVENT DATE: 20140818
